FAERS Safety Report 17536760 (Version 2)
Quarter: 2020Q1

REPORT INFORMATION
  Report Type: Spontaneous
  Country: FR (occurrence: FR)
  Receive Date: 20200313
  Receipt Date: 20200313
  Transmission Date: 20200409
  Serious: Yes (Hospitalization)
  Sender: FDA-Public Use
  Company Number: FR-TEVA-2020-FR-1188855

PATIENT
  Age: 59 Year
  Sex: Female

DRUGS (2)
  1. FLUOROURACILE TEVA [Suspect]
     Active Substance: FLUOROURACIL
     Indication: ANAL SQUAMOUS CELL CARCINOMA
     Route: 042
     Dates: start: 20200113, end: 20200116
  2. MITOMYCIN MEDAC [Suspect]
     Active Substance: MITOMYCIN
     Indication: ANAL SQUAMOUS CELL CARCINOMA
     Dosage: 20.5 MG
     Route: 042
     Dates: start: 20200113, end: 20200113

REACTIONS (6)
  - Chills [Recovered/Resolved]
  - Product supply issue [Not Recovered/Not Resolved]
  - Hyperthermia [Recovered/Resolved]
  - Incorrect dose administered [Recovered/Resolved]
  - Mucosal inflammation [Recovered/Resolved]
  - Diarrhoea [Recovered/Resolved]

NARRATIVE: CASE EVENT DATE: 20200118
